FAERS Safety Report 12156467 (Version 1)
Quarter: 2016Q1

REPORT INFORMATION
  Report Type: Report from Study
  Country: FR (occurrence: FR)
  Receive Date: 20160307
  Receipt Date: 20160307
  Transmission Date: 20160526
  Serious: Yes (Other)
  Sender: FDA-Public Use
  Company Number: FR-VIIV HEALTHCARE LIMITED-B0550952A

PATIENT
  Age: 3 Year
  Sex: Male

DRUGS (4)
  1. NELFINAVIR [Suspect]
     Active Substance: NELFINAVIR
  2. ZIDOVUDINE. [Suspect]
     Active Substance: ZIDOVUDINE
     Indication: HIV INFECTION
  3. LAMIVUDINE. [Suspect]
     Active Substance: LAMIVUDINE
     Indication: HIV INFECTION
  4. DIDANOSINE. [Suspect]
     Active Substance: DIDANOSINE

REACTIONS (2)
  - Neoplasm [Unknown]
  - Exposure during pregnancy [Unknown]

NARRATIVE: CASE EVENT DATE: 2004
